FAERS Safety Report 5144464-7 (Version None)
Quarter: 2006Q4

REPORT INFORMATION
  Report Type: 
  Country: None (occurrence: None)
  Receive Date: 20061031
  Receipt Date: 20061018
  Transmission Date: 20070319
  Serious: Yes (Other)
  Sender: FDA-Public Use
  Company Number: 148966ISR

PATIENT
  Age: 48 Year
  Sex: Female

DRUGS (1)
  1. MITOXANTRONE 2 MG/ML (MITOXANTRONE) [Suspect]
     Indication: MULTIPLE SCLEROSIS
     Dosage: 9 MG/M2

REACTIONS (1)
  - PANCREATITIS ACUTE [None]
